FAERS Safety Report 16368583 (Version 1)
Quarter: 2019Q2

REPORT INFORMATION
  Report Type: Spontaneous
  Country: US (occurrence: US)
  Receive Date: 20190529
  Receipt Date: 20190529
  Transmission Date: 20190711
  Serious: No
  Sender: FDA-Public Use
  Company Number: US-GILEAD-2019-0410669

PATIENT
  Sex: Male

DRUGS (1)
  1. RANEXA [Suspect]
     Active Substance: RANOLAZINE
     Indication: DYSPNOEA
     Dosage: 500 MG, BID
     Route: 065
     Dates: start: 20190523

REACTIONS (1)
  - Off label use [Not Recovered/Not Resolved]
